FAERS Safety Report 19156768 (Version 3)
Quarter: 2021Q3

REPORT INFORMATION
  Report Type: Spontaneous
  Country: ES (occurrence: ES)
  Receive Date: 20210420
  Receipt Date: 20210702
  Transmission Date: 20211014
  Serious: Yes (Hospitalization, Other)
  Sender: FDA-Public Use
  Company Number: ES-SA-2021SA120485

PATIENT
  Age: 77 Year
  Sex: Female

DRUGS (4)
  1. OMEGA?3 [SALMO SALAR OIL] [Concomitant]
     Active Substance: ATLANTIC SALMON OIL
     Dosage: UNK
     Route: 048
  2. APIDRA [Suspect]
     Active Substance: INSULIN GLULISINE
     Indication: TYPE 2 DIABETES MELLITUS
     Dosage: 10 IU, TID
     Route: 058
  3. LANTUS [Suspect]
     Active Substance: INSULIN GLARGINE
     Indication: TYPE 2 DIABETES MELLITUS
     Dosage: UNK
     Route: 058
     Dates: end: 20210406
  4. ERYTHROPOIETIN [EPOETIN BETA] [Concomitant]
     Indication: ANAEMIA
     Dosage: UNK
     Route: 058

REACTIONS (13)
  - Respiratory distress [Recovering/Resolving]
  - Hypertension [Not Recovered/Not Resolved]
  - Cardiac disorder [Recovering/Resolving]
  - Product storage error [Unknown]
  - Lung disorder [Recovering/Resolving]
  - Pericardial effusion [Recovering/Resolving]
  - Lack of injection site rotation [Not Recovered/Not Resolved]
  - Renal disorder [Not Recovered/Not Resolved]
  - Injection site bruising [Not Recovered/Not Resolved]
  - Pulmonary oedema [Recovering/Resolving]
  - Dyspnoea [Recovering/Resolving]
  - Condition aggravated [Not Recovered/Not Resolved]
  - Vomiting [Recovered/Resolved]

NARRATIVE: CASE EVENT DATE: 2020
